FAERS Safety Report 6681949-6 (Version None)
Quarter: 2010Q2

REPORT INFORMATION
  Report Type: 
  Country: None (occurrence: None)
  Receive Date: 20100408
  Receipt Date: 20100330
  Transmission Date: 20101027
  Serious: Yes (Death, Life-Threatening, Other)
  Sender: FDA-Public Use
  Company Number: AECAN201000099

PATIENT
  Age: 79 Year
  Sex: Female
  Weight: 103 kg

DRUGS (10)
  1. GAMUNEX [Suspect]
     Indication: HEADACHE
     Dosage: 25 GM; IV, ; IV, 50 ML; TOTAL; IV
     Route: 042
     Dates: start: 20091207, end: 20100101
  2. GAMUNEX [Suspect]
     Indication: MUSCULAR WEAKNESS
     Dosage: 25 GM; IV, ; IV, 50 ML; TOTAL; IV
     Route: 042
     Dates: start: 20091207, end: 20100101
  3. GAMUNEX [Suspect]
     Indication: HEADACHE
     Dosage: 25 GM; IV, ; IV, 50 ML; TOTAL; IV
     Route: 042
     Dates: start: 20100128, end: 20100128
  4. GAMUNEX [Suspect]
     Indication: MUSCULAR WEAKNESS
     Dosage: 25 GM; IV, ; IV, 50 ML; TOTAL; IV
     Route: 042
     Dates: start: 20100128, end: 20100128
  5. GAMUNEX [Suspect]
     Indication: HEADACHE
     Dosage: 25 GM; IV, ; IV, 50 ML; TOTAL; IV
     Route: 042
     Dates: start: 20100129, end: 20100201
  6. GAMUNEX [Suspect]
     Indication: MUSCULAR WEAKNESS
     Dosage: 25 GM; IV, ; IV, 50 ML; TOTAL; IV
     Route: 042
     Dates: start: 20100129, end: 20100201
  7. GAMUNEX [Suspect]
     Indication: HEADACHE
     Dosage: 25 GM; IV, ; IV, 50 ML; TOTAL; IV
     Route: 042
     Dates: start: 20100201, end: 20100201
  8. GAMUNEX [Suspect]
     Indication: MUSCULAR WEAKNESS
     Dosage: 25 GM; IV, ; IV, 50 ML; TOTAL; IV
     Route: 042
     Dates: start: 20100201, end: 20100201
  9. GAMUNEX [Suspect]
  10. GAMUNEX [Suspect]

REACTIONS (5)
  - CARDIO-RESPIRATORY ARREST [None]
  - CRYING [None]
  - CYANOSIS [None]
  - HYPOTENSION [None]
  - TRANSFUSION REACTION [None]
